FAERS Safety Report 24682931 (Version 1)
Quarter: 2024Q4

REPORT INFORMATION
  Report Type: Spontaneous
  Country: US (occurrence: US)
  Receive Date: 20241201
  Receipt Date: 20241201
  Transmission Date: 20250115
  Serious: No
  Sender: SANOFI AVENTIS
  Company Number: US-SA-2024SA351305

PATIENT
  Age: 69 Year
  Sex: Female

DRUGS (10)
  1. KEVZARA [Suspect]
     Active Substance: SARILUMAB
     Indication: Rheumatoid arthritis
     Dosage: 200 MG, QOW
     Route: 058
     Dates: start: 20241101
  2. ENTRESTO [Concomitant]
     Active Substance: SACUBITRIL\VALSARTAN
     Dosage: UNK
  3. FUROSEMIDE [Concomitant]
     Active Substance: FUROSEMIDE
     Dosage: UNK
  4. HYDROCODONE BITARTRATE [Concomitant]
     Active Substance: HYDROCODONE BITARTRATE
     Dosage: UNK
  5. LABETALOL HYDROCHLORIDE [Concomitant]
     Active Substance: LABETALOL HYDROCHLORIDE
     Dosage: UNK
  6. METFORMIN HYDROCHLORIDE [Concomitant]
     Active Substance: METFORMIN HYDROCHLORIDE
     Dosage: UNK
  7. OZEMPIC [Concomitant]
     Active Substance: SEMAGLUTIDE
     Dosage: UNK
  8. XARELTO [Concomitant]
     Active Substance: RIVAROXABAN
     Dosage: UNK
  9. SOTALOL HYDROCHLORIDE [Concomitant]
     Active Substance: SOTALOL HYDROCHLORIDE
     Dosage: UNK
  10. POTASSIUM CHLORIDE [Concomitant]
     Active Substance: POTASSIUM CHLORIDE
     Dosage: UNK

REACTIONS (1)
  - Arthralgia [Not Recovered/Not Resolved]

NARRATIVE: CASE EVENT DATE: 20240101
